FAERS Safety Report 19857787 (Version 2)
Quarter: 2021Q4

REPORT INFORMATION
  Report Type: Spontaneous
  Country: US (occurrence: None)
  Receive Date: 20210921
  Receipt Date: 20211119
  Transmission Date: 20220303
  Serious: No
  Sender: FDA-Public Use
  Company Number: 2021A723830

PATIENT
  Age: 25840 Day
  Sex: Female
  Weight: 72.6 kg

DRUGS (2)
  1. BYDUREON BCISE [Suspect]
     Active Substance: EXENATIDE
     Indication: Type 2 diabetes mellitus
     Route: 058
  2. ANTI-GLYCEMIC [Concomitant]
     Indication: Diabetes mellitus management
     Route: 048

REACTIONS (6)
  - Injection site bruising [Unknown]
  - Cellulitis [Unknown]
  - Injection site pain [Unknown]
  - Injection site erythema [Recovered/Resolved]
  - Device defective [Unknown]
  - Device leakage [Unknown]

NARRATIVE: CASE EVENT DATE: 20210908
